FAERS Safety Report 8612329-1 (Version None)
Quarter: 2012Q3

REPORT INFORMATION
  Report Type: 
  Country: None (occurrence: None)
  Receive Date: 20120822
  Receipt Date: 20120816
  Transmission Date: 20120928
  Serious: Yes (Other)
  Sender: FDA-Public Use
  Company Number: BR-AMGEN-BRASP2012052344

PATIENT
  Age: 49 Year

DRUGS (1)
  1. CINACALCET HYDROCHLORIDE [Suspect]
     Indication: HYPERPARATHYROIDISM SECONDARY
     Dosage: 30 MG, BID
     Route: 048
     Dates: start: 20120201, end: 20120301

REACTIONS (4)
  - EYE HAEMORRHAGE [None]
  - DRUG INEFFECTIVE [None]
  - PAIN [None]
  - BLINDNESS [None]
